FAERS Safety Report 4342761-6 (Version None)
Quarter: 2004Q2

REPORT INFORMATION
  Report Type: 
  Country: None (occurrence: None)
  Receive Date: 20040416
  Receipt Date: 20040406
  Transmission Date: 20050107
  Serious: Yes (Death)
  Sender: FDA-Public Use
  Company Number: SE-JNJFOC-20040401335

PATIENT
  Age: 74 Year
  Sex: Female

DRUGS (11)
  1. REOPRO [Suspect]
     Indication: MYOCARDIAL INFARCTION
     Dosage: 2 MG/ML, INTRAVENOUS
     Route: 042
     Dates: start: 20040126, end: 20040127
  2. ENOXAPARIN SODIUM [Suspect]
     Indication: THROMBOSIS PROPHYLAXIS
     Dosage: 100 MG/ML, SUBCUTANEOUS
     Route: 058
     Dates: start: 20040120, end: 20040127
  3. ASPIRIN [Suspect]
     Indication: MYOCARDIAL INFARCTION
     Dosage: ORAL
     Route: 048
     Dates: start: 19920101
  4. PLAVIX [Suspect]
     Indication: THROMBOSIS PROPHYLAXIS
     Dosage: 75 MG, ORAL
     Route: 048
     Dates: start: 20040121, end: 20040127
  5. LASIX RETARD (FUROSEMIDE) CAPSULES [Concomitant]
  6. INSULIN MIXTARD (INSULIN INJECTION, ISOPHANE) [Concomitant]
  7. SELOKENZOC (METOPROLOL SUCCINATE) TABLETS [Concomitant]
  8. SIMVASTATIN (SIMVASTATIN) TABLETS [Concomitant]
  9. IMDUR (ISOSRBIDE MONONITRATE) TABLETS [Concomitant]
  10. TRIATEC (RAMIPRIL) TABELTS [Concomitant]
  11. IMOVANE (ZOPICLONE) TABLETS [Concomitant]

REACTIONS (6)
  - CEREBRAL HAEMORRHAGE [None]
  - CONFUSIONAL STATE [None]
  - CORONARY ARTERY DISEASE [None]
  - DRUG INTERACTION [None]
  - INTRAVENTRICULAR HAEMORRHAGE [None]
  - SUBDURAL HAEMATOMA [None]
